FAERS Safety Report 8359299-1 (Version None)
Quarter: 2012Q2

REPORT INFORMATION
  Report Type: 
  Country: None (occurrence: None)
  Receive Date: 20120515
  Receipt Date: 20120507
  Transmission Date: 20120825
  Serious: Yes (Hospitalization)
  Sender: FDA-Public Use
  Company Number: US-BAYER-201023419NA

PATIENT
  Age: 30 Year
  Sex: Female
  Weight: 105 kg

DRUGS (11)
  1. LABETALOL HCL [Concomitant]
     Indication: HYPERTENSION
  2. CLINDAMYCIN HCL [Concomitant]
     Dosage: 150 MBQ (DAILY DOSE), , ORAL
     Route: 048
     Dates: start: 20050302
  3. FLUOCINONIDE [Concomitant]
     Route: 061
     Dates: start: 20041031
  4. METHYLPREDNISOLONE [Concomitant]
     Dosage: 4 MG (DAILY DOSE), , ORAL
     Route: 048
     Dates: start: 20050302
  5. NASACORT AQ [Concomitant]
     Route: 045
     Dates: start: 20050927
  6. IBUPROFEN [Concomitant]
     Dosage: 800 MG (DAILY DOSE), , ORAL
     Route: 048
     Dates: start: 20050303
  7. ACETAMINOPHEN W/ CODEINE [Concomitant]
     Route: 048
     Dates: start: 20050330
  8. LEVAQUIN [Concomitant]
     Dosage: 500 MG (DAILY DOSE), , ORAL
     Route: 048
     Dates: start: 20050504
  9. YASMIN [Suspect]
     Indication: CONTRACEPTION
     Route: 048
     Dates: start: 20030904, end: 20050901
  10. HYDROCODONE BITARTRATE AND ACETAMINOPHEN [Concomitant]
     Dosage: DOSE REGIMEN: 5/500MG
     Route: 048
     Dates: start: 20050408
  11. BENAZEPRIL HYDROCHLORIDE [Concomitant]
     Dosage: 10 MG, TABLET DISPENSED 08-JUL-2005 TO 15-SEP-2005
     Dates: start: 20050708, end: 20050915

REACTIONS (3)
  - OEDEMA PERIPHERAL [None]
  - DEEP VEIN THROMBOSIS [None]
  - PAIN IN EXTREMITY [None]
